FAERS Safety Report 16826676 (Version 4)
Quarter: 2020Q3

REPORT INFORMATION
  Report Type: Report from Study
  Country: CN (occurrence: CN)
  Receive Date: 20190919
  Receipt Date: 20200920
  Transmission Date: 20201102
  Serious: Yes (Hospitalization)
  Sender: FDA-Public Use
  Company Number: CN-ROCHE-2404051

PATIENT
  Age: 4 Year
  Sex: Male
  Weight: 15 kg

DRUGS (7)
  1. TOCILIZUMAB. [Suspect]
     Active Substance: TOCILIZUMAB
     Indication: STILL^S DISEASE
     Dosage: DATE OF LAST DOSE PRIOR TO AE 19/AUG/2019.
     Route: 042
     Dates: start: 20190805, end: 20190904
  2. IBUPROFEN. [Concomitant]
     Active Substance: IBUPROFEN
  3. REDUCED GLUTATHIONE SODIUM [Concomitant]
     Active Substance: GLUTATHIONE
     Dates: start: 20190902, end: 20190909
  4. ORNITHINE [Concomitant]
     Active Substance: ORNITHINE
     Dates: start: 20190902, end: 20190909
  5. TOCILIZUMAB. [Suspect]
     Active Substance: TOCILIZUMAB
     Route: 042
     Dates: start: 20190909
  6. GLUCUROLACTONE [Concomitant]
     Active Substance: GLUCUROLACTONE
     Dates: start: 20190902
  7. BIFENDATE [Concomitant]
     Active Substance: BIFENDATE
     Dates: start: 20190902

REACTIONS (1)
  - Hepatic function abnormal [Recovered/Resolved]

NARRATIVE: CASE EVENT DATE: 20190902
